FAERS Safety Report 19443166 (Version 2)
Quarter: 2021Q3

REPORT INFORMATION
  Report Type: Spontaneous
  Country: VE (occurrence: VE)
  Receive Date: 20210621
  Receipt Date: 20210702
  Transmission Date: 20211014
  Serious: Yes (Death, Life-Threatening, Other)
  Sender: FDA-Public Use
  Company Number: VE-SA-2021SA195730

PATIENT
  Age: 35 Year
  Sex: Female
  Weight: 53 kg

DRUGS (1)
  1. CLEXANE [Suspect]
     Active Substance: ENOXAPARIN SODIUM
     Indication: HYPERCOAGULATION
     Dosage: UNK
     Route: 058
     Dates: start: 202010

REACTIONS (4)
  - Injection site pain [Unknown]
  - Maternal exposure during pregnancy [Unknown]
  - Product prescribing issue [Unknown]
  - Foetal death [Fatal]

NARRATIVE: CASE EVENT DATE: 20210601
